FAERS Safety Report 5277830-X (Version None)
Quarter: 2007Q1

REPORT INFORMATION
  Report Type: 
  Country: None (occurrence: None)
  Receive Date: 20070327
  Receipt Date: 20070315
  Transmission Date: 20070707
  Serious: Yes (Other)
  Sender: FDA-Public Use
  Company Number: NL-PFIZER INC-2007018513

PATIENT
  Sex: Male
  Weight: 70 kg

DRUGS (5)
  1. LYRICA [Suspect]
     Indication: PAIN
     Dosage: DAILY DOSE:450MG
     Route: 048
  2. LYRICA [Suspect]
     Indication: PANCREATITIS CHRONIC
  3. BUPRENORPHINE HCL [Concomitant]
     Dates: start: 20070202
  4. MIDAZOLAM HCL [Concomitant]
     Dates: start: 20060901
  5. REMERON [Concomitant]
     Route: 048
     Dates: start: 20060901

REACTIONS (2)
  - DRUG INEFFECTIVE [None]
  - PAIN [None]
